FAERS Safety Report 5929602-8 (Version None)
Quarter: 2008Q3

REPORT INFORMATION
  Report Type: 
  Country: None (occurrence: None)
  Receive Date: 20080929
  Receipt Date: 20080619
  Transmission Date: 20090109
  Serious: Yes (Other)
  Sender: FDA-Public Use
  Company Number: TPA2008A00934

PATIENT
  Age: 70 Year
  Sex: Female
  Weight: 95.2554 kg

DRUGS (10)
  1. ACTOPLUS MET [Suspect]
     Indication: TYPE 2 DIABETES MELLITUS
     Dosage: 15 MG/500 MG, 1 IN 1 D, PER ORAL ; 15 MG/500 MG, 2 IN 1 D, PER ORAL
     Route: 048
     Dates: start: 20080514, end: 20080524
  2. ACTOPLUS MET [Suspect]
     Indication: TYPE 2 DIABETES MELLITUS
     Dosage: 15 MG/500 MG, 1 IN 1 D, PER ORAL ; 15 MG/500 MG, 2 IN 1 D, PER ORAL
     Route: 048
     Dates: start: 20080524, end: 20080619
  3. METFORMIN HCL [Concomitant]
  4. AMARYL [Concomitant]
  5. THYROID TAB [Concomitant]
  6. PREMPRO [Concomitant]
  7. DIOVAN [Concomitant]
  8. METOPROLOL TARTRATE [Concomitant]
  9. CELEBREX [Concomitant]
  10. LIPITOR [Concomitant]

REACTIONS (8)
  - ASTHENIA [None]
  - BLOOD GLUCOSE INCREASED [None]
  - DECREASED APPETITE [None]
  - DRUG INEFFECTIVE [None]
  - FATIGUE [None]
  - JAUNDICE [None]
  - VEIN DISORDER [None]
  - WEIGHT DECREASED [None]
